FAERS Safety Report 18924136 (Version 12)
Quarter: 2024Q4

REPORT INFORMATION
  Report Type: Report from Study
  Country: CO (occurrence: CO)
  Receive Date: 20210222
  Receipt Date: 20241021
  Transmission Date: 20250114
  Serious: Yes (Other)
  Sender: NOVARTIS
  Company Number: NVSC2021CO039095

PATIENT
  Sex: Female
  Weight: 79 kg

DRUGS (14)
  1. KISQALI [Suspect]
     Active Substance: RIBOCICLIB
     Indication: Breast cancer metastatic
     Dosage: 400 MG, QD
     Route: 048
     Dates: start: 20200825, end: 20240222
  2. KISQALI [Suspect]
     Active Substance: RIBOCICLIB
     Indication: Hormone receptor positive HER2 negative breast cancer
     Dosage: 600 MG, QD
     Route: 048
     Dates: start: 20240825
  3. KISQALI [Suspect]
     Active Substance: RIBOCICLIB
     Dosage: 600 MG, QD
     Route: 048
     Dates: start: 202010, end: 20210201
  4. KISQALI [Suspect]
     Active Substance: RIBOCICLIB
     Dosage: 400 MG, QD (2 OF 200 MG)
     Route: 048
     Dates: start: 20210201, end: 20210208
  5. KISQALI [Suspect]
     Active Substance: RIBOCICLIB
     Dosage: 400 MG, QD (2 TABLET OF 200 MG)
     Route: 048
     Dates: start: 202103
  6. KISQALI [Suspect]
     Active Substance: RIBOCICLIB
     Dosage: 400 MG, Q24H
     Route: 048
     Dates: start: 20210420
  7. KISQALI [Suspect]
     Active Substance: RIBOCICLIB
     Dosage: 400 MG, QD (200 MG TABLET)
     Route: 048
  8. KISQALI [Suspect]
     Active Substance: RIBOCICLIB
     Dosage: 600 MG, QD
     Route: 048
     Dates: start: 20240222
  9. FEMARA [Suspect]
     Active Substance: LETROZOLE
     Indication: Breast cancer
     Dosage: 2.5 MG, QD
     Route: 048
     Dates: start: 202010
  10. LEVOTHYROXINE [Concomitant]
     Active Substance: LEVOTHYROXINE
     Indication: Hypothyroidism
     Dosage: 50 MG, QD
     Route: 048
     Dates: start: 202007
  11. BUSCAPINA [Concomitant]
     Indication: Product used for unknown indication
     Dosage: UNK
     Route: 065
  12. PANTOPRAX [Concomitant]
     Indication: Product used for unknown indication
     Dosage: UNK
     Route: 065
  13. CALCIUM\VITAMIN D [Concomitant]
     Active Substance: CALCIUM\VITAMIN D
     Indication: Supplementation therapy
     Dosage: 600 MG, QD
     Route: 048
     Dates: start: 202101
  14. SACCHAROMYCES MEDICINALIS [Concomitant]
     Indication: Dysbiosis
     Dosage: QD
     Route: 065

REACTIONS (8)
  - Hepatitis [Recovered/Resolved]
  - Colitis [Unknown]
  - Synovial cyst [Unknown]
  - Constipation [Recovering/Resolving]
  - Illness [Unknown]
  - Influenza [Recovered/Resolved]
  - Pain in extremity [Recovering/Resolving]
  - Bone disorder [Recovering/Resolving]
